FAERS Safety Report 17783862 (Version 1)
Quarter: 2020Q2

REPORT INFORMATION
  Report Type: Spontaneous
  Country: US (occurrence: US)
  Receive Date: 20200513
  Receipt Date: 20200513
  Transmission Date: 20200714
  Serious: Yes (Hospitalization)
  Sender: FDA-Public Use
  Company Number: None

PATIENT
  Age: 73 Year
  Sex: Female

DRUGS (7)
  1. NITROGLYCERN [Concomitant]
  2. ASPIRIN. [Concomitant]
     Active Substance: ASPIRIN
  3. OFLOXACIN. [Concomitant]
     Active Substance: OFLOXACIN
  4. ESBRIET [Suspect]
     Active Substance: PIRFENIDONE
     Indication: IDIOPATHIC PULMONARY FIBROSIS
     Route: 048
     Dates: start: 20160113
  5. PANTOPRAZOLE [Concomitant]
     Active Substance: PANTOPRAZOLE
  6. ATORVASTATIN [Concomitant]
     Active Substance: ATORVASTATIN
  7. METOPROL TAR [Concomitant]

REACTIONS (2)
  - Therapy interrupted [None]
  - Cerebrovascular accident [None]

NARRATIVE: CASE EVENT DATE: 20200428
